FAERS Safety Report 7042523-5 (Version None)
Quarter: 2010Q4

REPORT INFORMATION
  Report Type: 
  Country: None (occurrence: None)
  Receive Date: 20101013
  Receipt Date: 20100426
  Transmission Date: 20110411
  Serious: No
  Sender: FDA-Public Use
  Company Number: US-ASTRAZENECA-2010SE18577

PATIENT
  Sex: Male
  Weight: 86.2 kg

DRUGS (5)
  1. SYMBICORT [Suspect]
     Indication: CHRONIC OBSTRUCTIVE PULMONARY DISEASE
     Dosage: 160/4.5 TOTAL 640 MCG FOR 2-3 DAYS
     Route: 055
  2. PULMICORT [Suspect]
     Indication: CHRONIC OBSTRUCTIVE PULMONARY DISEASE
     Route: 055
  3. PULMICORT [Suspect]
     Dosage: 1MG/2ML
     Route: 055
     Dates: start: 20100101
  4. ALBUTEROL [Concomitant]
     Dosage: TWO PUFFS TWO TIMES A DAY.
  5. ACCOLATE [Concomitant]

REACTIONS (7)
  - CHEST DISCOMFORT [None]
  - DYSPNOEA [None]
  - EPISTAXIS [None]
  - EYE PAIN [None]
  - HEADACHE [None]
  - PYREXIA [None]
  - SWELLING FACE [None]
